FAERS Safety Report 7979706-3 (Version None)
Quarter: 2011Q4

REPORT INFORMATION
  Report Type: 
  Country: None (occurrence: None)
  Receive Date: 20111214
  Receipt Date: 20111206
  Transmission Date: 20120403
  Serious: Yes (Hospitalization)
  Sender: FDA-Public Use
  Company Number: BE-ROCHE-792371

PATIENT
  Sex: Female
  Weight: 68.2 kg

DRUGS (17)
  1. LEVOTHYROXINE SODIUM [Concomitant]
  2. DOMPERIDONE [Concomitant]
  3. MOTILIUM (BELGIUM) [Concomitant]
     Dates: start: 20110708
  4. HERCEPTIN [Suspect]
     Indication: BREAST CANCER
     Dosage: LOADING DOSE, FORM: VIALS
     Route: 042
  5. XELODA [Suspect]
     Indication: BREAST CANCER
     Dosage: LAST DOSE PRIOR TO SAE: 31 AUGUST 2011
     Route: 048
  6. REMERGON [Concomitant]
  7. PYRIDOXINE HCL [Concomitant]
  8. ACETAMINOPHEN [Concomitant]
     Dosage: FREQUENCY AS REQUIRED
  9. TENORMIN [Concomitant]
  10. TEMAZEPAM [Concomitant]
  11. METFORMIN HCL [Concomitant]
  12. EFFEXOR [Concomitant]
  13. HERCEPTIN [Suspect]
     Dosage: LAST DOSE PRIOR TO SAE: 31 AUGUST 2011
     Route: 042
  14. XANAX [Concomitant]
  15. LITHIUM CARBONATE [Concomitant]
  16. FRAXIPARINE [Concomitant]
     Dates: start: 20110726, end: 20110802
  17. LORAZEPAM [Concomitant]

REACTIONS (3)
  - PYELOCALIECTASIS [None]
  - URINARY TRACT INFECTION [None]
  - SEPSIS [None]
